FAERS Safety Report 19494274 (Version 1)
Quarter: 2021Q3

REPORT INFORMATION
  Report Type: Report from Study
  Country: CA (occurrence: CA)
  Receive Date: 20210705
  Receipt Date: 20210705
  Transmission Date: 20211014
  Serious: No
  Sender: FDA-Public Use
  Company Number: CA-UCBSA-2021028549

PATIENT
  Sex: Male

DRUGS (1)
  1. ROTIGOTINE RLS [Suspect]
     Active Substance: ROTIGOTINE
     Indication: RESTLESS LEGS SYNDROME
     Dosage: 3 MILLIGRAM, ONCE DAILY (QD)
     Route: 062

REACTIONS (2)
  - Device adhesion issue [Unknown]
  - Restless legs syndrome [Recovering/Resolving]
